FAERS Safety Report 4762644-7 (Version None)
Quarter: 2005Q3

REPORT INFORMATION
  Report Type: 
  Country: None (occurrence: None)
  Receive Date: 20050907
  Receipt Date: 20050420
  Transmission Date: 20060218
  Serious: Yes (Hospitalization, Disabling)
  Sender: FDA-Public Use
  Company Number: 2005AP02424

PATIENT
  Age: 26082 Day
  Sex: Male
  Weight: 75.8 kg

DRUGS (9)
  1. CASODEX [Suspect]
     Indication: PROSTATE CANCER
     Route: 048
     Dates: start: 20050101, end: 20050307
  2. LEUPLIN [Concomitant]
     Indication: PROSTATE CANCER
     Route: 058
     Dates: start: 20050101
  3. HARNAL [Concomitant]
     Indication: BENIGN PROSTATIC HYPERPLASIA
     Route: 048
  4. ARTIST [Concomitant]
     Indication: HYPERTENSION
     Route: 048
  5. DIOVAN [Concomitant]
     Indication: HYPERTENSION
     Route: 048
  6. COMELIAN [Concomitant]
     Indication: MYOCARDIAL INFARCTION
     Route: 048
  7. MEVALOTIN [Concomitant]
     Indication: HYPERLIPIDAEMIA
     Route: 048
  8. ASPIRIN [Concomitant]
     Indication: MYOCARDIAL INFARCTION
     Route: 048
  9. SELBEX [Concomitant]
     Indication: GASTRITIS
     Route: 048

REACTIONS (2)
  - NEPHROTIC SYNDROME [None]
  - RENAL FAILURE ACUTE [None]
